FAERS Safety Report 24961277 (Version 1)
Quarter: 2025Q1

REPORT INFORMATION
  Report Type: Spontaneous
  Country: FR (occurrence: FR)
  Receive Date: 20250212
  Receipt Date: 20250212
  Transmission Date: 20250408
  Serious: Yes (Hospitalization, Other)
  Sender: ANI
  Company Number: FR-ANIPHARMA-2025-FR-000027

PATIENT
  Age: 84 Year
  Sex: Female
  Weight: 62 kg

DRUGS (23)
  1. CANDESARTAN CILEXETIL [Suspect]
     Active Substance: CANDESARTAN CILEXETIL
     Indication: Hypertension
     Route: 048
     Dates: start: 20241224
  2. Normacol lavement adultes [Concomitant]
  3. ONDANSETRON [Concomitant]
     Active Substance: ONDANSETRON
  4. RIFAMPIN [Concomitant]
     Active Substance: RIFAMPIN
  5. RISPERIDONE [Concomitant]
     Active Substance: RISPERIDONE
  6. OXAZEPAM [Concomitant]
     Active Substance: OXAZEPAM
  7. PIPERACILLIN SODIUM\TAZOBACTAM SODIUM [Concomitant]
     Active Substance: PIPERACILLIN SODIUM\TAZOBACTAM SODIUM
  8. VENLAFAXINE [Concomitant]
     Active Substance: VENLAFAXINE HYDROCHLORIDE
  9. VALSARTAN [Concomitant]
     Active Substance: VALSARTAN
  10. ATENOLOL [Concomitant]
     Active Substance: ATENOLOL
  11. POTASSIUM CHLORIDE [Concomitant]
     Active Substance: POTASSIUM CHLORIDE
  12. LOVENOX [Concomitant]
     Active Substance: ENOXAPARIN SODIUM
     Dates: start: 20241223, end: 20250110
  13. PANTOPRAZOLE [Concomitant]
     Active Substance: PANTOPRAZOLE
  14. IRON [Concomitant]
     Active Substance: IRON
  15. TRAMADOL HYDROCHLORIDE [Concomitant]
     Active Substance: TRAMADOL HYDROCHLORIDE
  16. Temesta [Concomitant]
  17. CEFAZOLIN SODIUM [Concomitant]
     Active Substance: CEFAZOLIN SODIUM
     Dates: start: 20241230
  18. CUBICIN [Concomitant]
     Active Substance: DAPTOMYCIN
     Dates: start: 20250106, end: 20250106
  19. CLINDAMYCIN [Concomitant]
     Active Substance: CLINDAMYCIN
     Dates: start: 20250106, end: 20250116
  20. NICARDIPINE [Concomitant]
     Active Substance: NICARDIPINE
     Dates: start: 20241224, end: 20250106
  21. VALPROATE SODIUM [Concomitant]
     Active Substance: VALPROATE SODIUM
  22. FUNGIZONE [Concomitant]
     Active Substance: AMPHOTERICIN B
  23. LEVOFLOXACIN [Concomitant]
     Active Substance: LEVOFLOXACIN

REACTIONS (2)
  - Petechiae [Recovering/Resolving]
  - Cutaneous vasculitis [Recovering/Resolving]

NARRATIVE: CASE EVENT DATE: 20250104
